FAERS Safety Report 16057674 (Version 1)
Quarter: 2019Q1

REPORT INFORMATION
  Report Type: Spontaneous
  Country: US (occurrence: US)
  Receive Date: 20190311
  Receipt Date: 20190311
  Transmission Date: 20190418
  Serious: No
  Sender: FDA-Public Use
  Company Number: US-BAYER-2019-046211

PATIENT
  Sex: Female
  Weight: 77 kg

DRUGS (1)
  1. MIRALAX [Suspect]
     Active Substance: POLYETHYLENE GLYCOL 3350
     Indication: GASTROINTESTINAL DISORDER
     Dosage: 3-6 DOSES IN GATORADE
     Route: 048
     Dates: start: 2009

REACTIONS (4)
  - Off label use [None]
  - Abdominal pain [Unknown]
  - Drug ineffective for unapproved indication [None]
  - Unevaluable event [Unknown]
